FAERS Safety Report 9026276 (Version 1)
Quarter: 2012Q4

REPORT INFORMATION
  Report Type: Spontaneous
  Country: US (occurrence: None)
  Receive Date: 20121214
  Receipt Date: 20121214
  Transmission Date: 20130627
  Serious: Yes (Life-Threatening)
  Sender: FDA-Public Use
  Company Number: None

PATIENT
  Age: 26 Year
  Sex: Female
  Weight: 83.92 kg

DRUGS (1)
  1. MIRENA IUD [Suspect]
     Dates: start: 201204, end: 201207

REACTIONS (7)
  - Device dislocation [None]
  - Uterine disorder [None]
  - Laceration [None]
  - Pelvic inflammatory disease [None]
  - Headache [None]
  - Pain [None]
  - Mobility decreased [None]
